FAERS Safety Report 9197873 (Version 1)
Quarter: 2013Q1

REPORT INFORMATION
  Report Type: Report from Study
  Country: JP (occurrence: JP)
  Receive Date: 20130328
  Receipt Date: 20130328
  Transmission Date: 20140127
  Serious: Yes (Death, Other)
  Sender: FDA-Public Use
  Company Number: JP-ACTELION-A-CH2013-80969

PATIENT
  Age: 76 Year
  Sex: Female
  Weight: 54.1 kg

DRUGS (8)
  1. TRACLEER [Suspect]
     Indication: PULMONARY ARTERIAL HYPERTENSION
     Dosage: 93.75 MG, BID
     Route: 048
     Dates: start: 20071105, end: 20071129
  2. TRACLEER [Suspect]
     Dosage: 125 MG, BID
     Route: 048
     Dates: start: 20071130, end: 20080202
  3. WARFARIN POTASSIUM [Concomitant]
  4. LOSARTAN POTASSIUM [Concomitant]
  5. ALLOPURINOL [Concomitant]
  6. PREDNISOLONE [Concomitant]
  7. LANSOPRAZOLE [Concomitant]
  8. OXYGEN [Concomitant]

REACTIONS (10)
  - Disseminated intravascular coagulation [Fatal]
  - Hepatic function abnormal [Not Recovered/Not Resolved]
  - Pneumonia [Not Recovered/Not Resolved]
  - White blood cell count increased [Not Recovered/Not Resolved]
  - Alanine aminotransferase increased [Not Recovered/Not Resolved]
  - Aspartate aminotransferase increased [Not Recovered/Not Resolved]
  - Gamma-glutamyltransferase increased [Not Recovered/Not Resolved]
  - Blood alkaline phosphatase increased [Not Recovered/Not Resolved]
  - Bilirubin conjugated increased [Not Recovered/Not Resolved]
  - Blood bilirubin increased [Not Recovered/Not Resolved]
